FAERS Safety Report 8489524-8 (Version None)
Quarter: 2012Q3

REPORT INFORMATION
  Report Type: 
  Country: None (occurrence: None)
  Receive Date: 20120705
  Receipt Date: 20120626
  Transmission Date: 20120928
  Serious: Yes (Hospitalization, Other)
  Sender: FDA-Public Use
  Company Number: US-JNJFOC-20120604211

PATIENT
  Sex: Female
  Weight: 97.52 kg

DRUGS (4)
  1. SIMPONI [Suspect]
     Route: 058
     Dates: start: 20110101
  2. SIMPONI [Suspect]
     Indication: PSORIATIC ARTHROPATHY
     Route: 058
     Dates: start: 20120301
  3. IBUPROFEN [Concomitant]
     Indication: PAIN
     Route: 048
  4. SIMPONI [Suspect]
     Route: 058
     Dates: start: 20110301, end: 20110101

REACTIONS (8)
  - MENORRHAGIA [None]
  - DRUG EFFECT DECREASED [None]
  - AMENORRHOEA [None]
  - VITAMIN D DEFICIENCY [None]
  - INAPPROPRIATE SCHEDULE OF DRUG ADMINISTRATION [None]
  - HORMONE LEVEL ABNORMAL [None]
  - ARTHRITIS [None]
  - BONE DISORDER [None]
